FAERS Safety Report 7678078-1 (Version None)
Quarter: 2011Q3

REPORT INFORMATION
  Report Type: 
  Country: None (occurrence: None)
  Receive Date: 20110811
  Receipt Date: 20110803
  Transmission Date: 20111222
  Serious: Yes (Other)
  Sender: FDA-Public Use
  Company Number: US-BAYER-2011-069633

PATIENT
  Sex: Female

DRUGS (1)
  1. MIRENA [Suspect]
     Dosage: 20 MCG/24HR, CONT
     Route: 015
     Dates: start: 20100201

REACTIONS (5)
  - VAGINAL HAEMORRHAGE [None]
  - INCREASED APPETITE [None]
  - BREAST DISCOMFORT [None]
  - AMENORRHOEA [None]
  - NIPPLE PAIN [None]
